FAERS Safety Report 13622264 (Version 1)
Quarter: 2017Q2

REPORT INFORMATION
  Report Type: Spontaneous
  Country: US (occurrence: US)
  Receive Date: 20170607
  Receipt Date: 20170607
  Transmission Date: 20170830
  Serious: No
  Sender: FDA-Public Use
  Company Number: None

PATIENT

DRUGS (1)
  1. HYDROCHLOROTHIAZIDE AND LISINOPRIL [Suspect]
     Active Substance: HYDROCHLOROTHIAZIDE\LISINOPRIL

REACTIONS (14)
  - Drug ineffective [None]
  - Product formulation issue [None]
  - Somnolence [None]
  - Fatigue [None]
  - Fall [None]
  - Dizziness postural [None]
  - Limb discomfort [None]
  - Dry mouth [None]
  - Asthenia [None]
  - Balance disorder [None]
  - Gait disturbance [None]
  - Abasia [None]
  - Syncope [None]
  - Discomfort [None]
